FAERS Safety Report 8171130-6 (Version None)
Quarter: 2012Q1

REPORT INFORMATION
  Report Type: 
  Country: None (occurrence: None)
  Receive Date: 20120228
  Receipt Date: 20120214
  Transmission Date: 20120608
  Serious: Yes (Other)
  Sender: FDA-Public Use
  Company Number: US-PFIZER INC-2012048336

PATIENT

DRUGS (2)
  1. ZYVOX [Suspect]
     Indication: PNEUMONIA
     Route: 048
  2. TYGACIL [Suspect]
     Indication: PNEUMONIA

REACTIONS (1)
  - BLOOD CULTURE POSITIVE [None]
